FAERS Safety Report 26002886 (Version 1)
Quarter: 2025Q4

REPORT INFORMATION
  Report Type: Spontaneous
  Country: GB (occurrence: GB)
  Receive Date: 20251106
  Receipt Date: 20251106
  Transmission Date: 20260117
  Serious: Yes (Disabling, Other)
  Sender: AUROBINDO
  Company Number: GB-MHRA-MED-202510241708292810-GZDRK

PATIENT
  Age: 46 Year
  Sex: Male
  Weight: 90 kg

DRUGS (1)
  1. PRAMIPEXOLE [Suspect]
     Active Substance: PRAMIPEXOLE
     Indication: Restless legs syndrome
     Dosage: UNK (0.8MG X 4)
     Route: 065
     Dates: start: 20240605, end: 20250207

REACTIONS (4)
  - Sleep disorder [Recovered/Resolved]
  - Medication error [Unknown]
  - Gambling [Recovered/Resolved]
  - Sexually active [Recovered/Resolved]
